FAERS Safety Report 6927591-0 (Version None)
Quarter: 2010Q3

REPORT INFORMATION
  Report Type: 
  Country: None (occurrence: None)
  Receive Date: 20100816
  Receipt Date: 20100816
  Transmission Date: 20110219
  Serious: Yes (Other)
  Sender: FDA-Public Use
  Company Number: None

PATIENT
  Sex: Male

DRUGS (2)
  1. DEPAKOTE ER [Suspect]
     Indication: SCHIZOPHRENIA
     Dosage: 1 TABLET THREE TIMES DAILY PO
     Route: 048
     Dates: start: 20100812, end: 20100814
  2. DEPAKOTE [Suspect]

REACTIONS (2)
  - DRUG PRESCRIBING ERROR [None]
  - MEDICATION ERROR [None]
